FAERS Safety Report 5912923-2 (Version None)
Quarter: 2008Q4

REPORT INFORMATION
  Report Type: 
  Country: None (occurrence: None)
  Receive Date: 20081006
  Receipt Date: 20080929
  Transmission Date: 20090506
  Serious: Yes (Hospitalization, Other)
  Sender: FDA-Public Use
  Company Number: 2007305434

PATIENT
  Age: 83 Year
  Sex: Female

DRUGS (9)
  1. GUAIPHENESIN/DEXTROMETHORPHAN (DEXTROMETHORPHAN, GUAIFENESIN) [Suspect]
     Indication: COUGH
     Dosage: 600MG/ 30MG BID
  2. METHADONE HCL [Suspect]
     Indication: PAIN
     Dosage: 20 MG/D (1 IN 1 D), ORAL
     Route: 048
  3. HYDROCODONE BITARTRATE + ACETAMINOPHEN [Concomitant]
  4. ESCITALOPRAM [Concomitant]
  5. IPRATROPIUM BROMIDE [Concomitant]
  6. METOCLOPRAMIDE [Concomitant]
  7. METOLAZONE [Concomitant]
  8. WARFARIN SODIUM [Concomitant]
  9. SERTRALINE [Concomitant]

REACTIONS (17)
  - ABNORMAL BEHAVIOUR [None]
  - ANOREXIA [None]
  - BLOOD UREA INCREASED [None]
  - CONFUSIONAL STATE [None]
  - DEHYDRATION [None]
  - DELIRIUM [None]
  - DEPRESSED MOOD [None]
  - DISTURBANCE IN ATTENTION [None]
  - DRUG INTERACTION [None]
  - FALL [None]
  - HYPERSOMNIA [None]
  - HYPONATRAEMIA [None]
  - HYPOPHAGIA [None]
  - IMPAIRED SELF-CARE [None]
  - LETHARGY [None]
  - MEMORY IMPAIRMENT [None]
  - STARING [None]
